FAERS Safety Report 4629462-1 (Version None)
Quarter: 2005Q2

REPORT INFORMATION
  Report Type: 
  Country: None (occurrence: None)
  Receive Date: 20050405
  Receipt Date: 20050328
  Transmission Date: 20051028
  Serious: Yes (Hospitalization)
  Sender: FDA-Public Use
  Company Number: 2005043023

PATIENT
  Age: 56 Year
  Sex: Male

DRUGS (6)
  1. CITALOR (ATORVASTATIN) [Suspect]
     Indication: DYSLIPIDAEMIA
     Dosage: 10 MG (10 MG, DAILY), ORAL
     Route: 048
     Dates: start: 20041116
  2. COMBIRON B 12 (ASCORBIC ACID, FERROUS SULFATE, VITAMIN B NOS) [Suspect]
     Indication: ANAEMIA
     Dosage: ORAL
     Route: 048
     Dates: start: 20050101, end: 20050101
  3. LOSARTAN (LOSARTAN) [Concomitant]
  4. ATENOLOL [Concomitant]
  5. ASPIRIN [Concomitant]
  6. ALDACTAZIDE A (HYDROCHLOROTHIAZIDE, SPIRONOLACTONE) [Concomitant]

REACTIONS (4)
  - ANAEMIA [None]
  - CORONARY ARTERY OCCLUSION [None]
  - GASTROINTESTINAL DISORDER [None]
  - POST PROCEDURAL COMPLICATION [None]
